FAERS Safety Report 5380780-1 (Version None)
Quarter: 2007Q3

REPORT INFORMATION
  Report Type: 
  Country: None (occurrence: None)
  Receive Date: 20070706
  Receipt Date: 20070625
  Transmission Date: 20080115
  Serious: Yes (Hospitalization, Other)
  Sender: FDA-Public Use
  Company Number: B0474288A

PATIENT
  Age: 77 Year
  Sex: Male
  Weight: 64 kg

DRUGS (7)
  1. AVANDAMET [Suspect]
     Route: 048
     Dates: start: 20070109, end: 20070502
  2. ASPIRIN [Concomitant]
     Route: 065
  3. ATACAND [Concomitant]
     Route: 065
  4. MOLSIDOMINE [Concomitant]
     Route: 065
  5. AMLODIPINE [Concomitant]
     Route: 065
  6. DIAMICRON [Concomitant]
     Route: 065
  7. INEGY [Concomitant]
     Route: 065

REACTIONS (3)
  - ADVERSE DRUG REACTION [None]
  - DYSPNOEA [None]
  - PLEURAL EFFUSION [None]
